FAERS Safety Report 9500715 (Version 5)
Quarter: 2013Q3

REPORT INFORMATION
  Report Type: Report from Study
  Country: US (occurrence: US)
  Receive Date: 20130905
  Receipt Date: 20130925
  Transmission Date: 20140515
  Serious: Yes (Hospitalization, Other)
  Sender: FDA-Public Use
  Company Number: US-SANOFI-AVENTIS-2013SA087895

PATIENT
  Age: 70 Year
  Sex: Male

DRUGS (3)
  1. AUBAGIO [Suspect]
     Route: 065
     Dates: end: 20130827
  2. AMPYRA [Suspect]
     Route: 065
  3. NITROFURANTOIN [Concomitant]

REACTIONS (12)
  - Bladder disorder [Unknown]
  - Urinary tract disorder [Unknown]
  - Haematochezia [Unknown]
  - Excoriation [Unknown]
  - Urinary tract infection [Recovering/Resolving]
  - Pain [Recovering/Resolving]
  - Rhinorrhoea [Not Recovered/Not Resolved]
  - Malaise [Unknown]
  - Contusion [Unknown]
  - Diarrhoea [Unknown]
  - Cough [Unknown]
  - Increased upper airway secretion [Unknown]
